FAERS Safety Report 5602303-1 (Version None)
Quarter: 2008Q1

REPORT INFORMATION
  Report Type: 
  Country: None (occurrence: None)
  Receive Date: 20080125
  Receipt Date: 20080111
  Transmission Date: 20080703
  Serious: Yes (Hospitalization)
  Sender: FDA-Public Use
  Company Number: HR-ELI_LILLY_AND_COMPANY-HR200712003917

PATIENT
  Sex: Male
  Weight: 86 kg

DRUGS (6)
  1. LISPRO [Suspect]
     Indication: DIABETES MELLITUS
     Dosage: 16 IU, UNKNOWN
     Route: 065
     Dates: start: 20030124
  2. LISPRO [Suspect]
     Dosage: 12 IU, UNKNOWN
     Route: 065
     Dates: start: 20030124
  3. LISPRO [Suspect]
     Dosage: 10 IU, UNKNOWN
     Route: 065
     Dates: start: 20030124
  4. ANDOL [Concomitant]
     Indication: ANGINA PECTORIS
     Dosage: 100 MG, DAILY (1/D)
     Route: 065
     Dates: start: 19991014
  5. ISOSORBIDE MONONITRATE [Concomitant]
     Indication: ANGINA PECTORIS
     Dosage: UNK, UNKNOWN
     Route: 065
     Dates: start: 20030509
  6. LESCOL [Concomitant]
     Indication: HYPERLIPIDAEMIA
     Dosage: UNK, UNKNOWN
     Route: 065
     Dates: start: 20030616

REACTIONS (1)
  - CARDIAC FAILURE CONGESTIVE [None]
